FAERS Safety Report 5031682-1 (Version None)
Quarter: 2006Q2

REPORT INFORMATION
  Report Type: 
  Country: None (occurrence: None)
  Receive Date: 20060616
  Receipt Date: 20060530
  Transmission Date: 20061013
  Serious: Yes (Hospitalization, Other)
  Sender: FDA-Public Use
  Company Number: JP200601000508

PATIENT
  Age: 78 Year
  Sex: Female

DRUGS (6)
  1. EVISTA [Suspect]
     Indication: OSTEOPOROSIS
     Dosage: 60 MG, DAILY (1/D), ORAL
     Route: 048
     Dates: start: 20050520
  2. ALENDRONATE SODIUM [Concomitant]
  3. ASPARA-CA (ASPARTATE CALCIUM) [Concomitant]
  4. SOLETON (ZALTOPROFEN) [Concomitant]
  5. AMOBAN (ZOPICLONE) [Concomitant]
  6. INDOMETHACIN [Concomitant]

REACTIONS (3)
  - DYSPNOEA EXERTIONAL [None]
  - PNEUMONITIS [None]
  - RESPIRATORY FAILURE [None]
